FAERS Safety Report 20000403 (Version 3)
Quarter: 2022Q2

REPORT INFORMATION
  Report Type: Spontaneous
  Country: US (occurrence: US)
  Receive Date: 20211026
  Receipt Date: 20220505
  Transmission Date: 20220720
  Serious: Yes (Death, Hospitalization, Other)
  Sender: FDA-Public Use
  Company Number: US-AMGEN-USASP2021164450

PATIENT
  Age: 87 Year
  Sex: Female
  Weight: 61.224 kg

DRUGS (8)
  1. EVENITY [Suspect]
     Active Substance: ROMOSOZUMAB-AQQG
     Indication: Osteoporosis postmenopausal
     Dosage: 210 MILLIGRAM, QMO
     Route: 058
  2. VITAMIN C [Concomitant]
     Active Substance: ASCORBIC ACID
     Dosage: UNK
  3. VOLTAREN [Concomitant]
     Active Substance: DICLOFENAC SODIUM
     Dosage: UNK
  4. LASIX [Concomitant]
     Active Substance: FUROSEMIDE
     Dosage: 40 MILLIGRAM, QD
  5. LOSARTAN [Concomitant]
     Active Substance: LOSARTAN
     Dosage: 12.5 MILLIGRAM, QD
  6. NIACIN [Concomitant]
     Active Substance: NIACIN
     Dosage: 1000 MILLIGRAM, QD
  7. ZOLOFT [Concomitant]
     Active Substance: SERTRALINE HYDROCHLORIDE
     Dosage: 100 MILLIGRAM, QD
  8. ALDACTONE [Concomitant]
     Active Substance: SPIRONOLACTONE
     Dosage: 25 MILLIGRAM, QD

REACTIONS (14)
  - Cardiac arrest [Fatal]
  - Cardiac failure acute [Fatal]
  - Metabolic acidosis [Fatal]
  - Cardiac failure congestive [Fatal]
  - Vomiting [Unknown]
  - Nausea [Unknown]
  - Atrial fibrillation [Unknown]
  - Tricuspid valve incompetence [Unknown]
  - Pulmonary oedema [Unknown]
  - Gait disturbance [Unknown]
  - Joint swelling [Unknown]
  - Constipation [Unknown]
  - Hypertension [Unknown]
  - Hyponatraemia [Unknown]

NARRATIVE: CASE EVENT DATE: 20210322
